FAERS Safety Report 4740431-3 (Version None)
Quarter: 2005Q3

REPORT INFORMATION
  Report Type: 
  Country: None (occurrence: None)
  Receive Date: 20050810
  Receipt Date: 20050729
  Transmission Date: 20060218
  Serious: Yes (Hospitalization)
  Sender: FDA-Public Use
  Company Number: AT-BRISTOL-MYERS SQUIBB COMPANY-13056437

PATIENT
  Age: 34 Year
  Sex: Male

DRUGS (5)
  1. CISPLATIN [Suspect]
     Indication: GERM CELL CANCER
     Dates: start: 20050720, end: 20050724
  2. BLEOMYCIN [Suspect]
     Indication: GERM CELL CANCER
     Dates: start: 20050721, end: 20050721
  3. ETOPOSIDE [Suspect]
     Indication: GERM CELL CANCER
     Dates: start: 20050720, end: 20050724
  4. TAXOL [Suspect]
     Indication: GERM CELL CANCER
     Dates: start: 20050720, end: 20050724
  5. NEUPOGEN [Concomitant]
     Dates: start: 20050725, end: 20050803

REACTIONS (3)
  - CIRCULATORY COLLAPSE [None]
  - HYPOTENSION [None]
  - NEUTROPENIA [None]
